FAERS Safety Report 7817801-X (Version None)
Quarter: 2011Q4

REPORT INFORMATION
  Report Type: 
  Country: None (occurrence: None)
  Receive Date: 20111017
  Receipt Date: 20111004
  Transmission Date: 20120403
  Serious: Yes (Other)
  Sender: FDA-Public Use
  Company Number: JP-JNJFOC-20110910947

PATIENT
  Age: 33 Year
  Sex: Female
  Weight: 49 kg

DRUGS (4)
  1. REMICADE [Suspect]
     Indication: COLITIS ULCERATIVE
     Dosage: 5TH DOSE ON UNSPECIFIED DATE
     Route: 042
  2. REMICADE [Suspect]
     Dosage: INDUCTION WEEK 0, 2, 6 AND THEN EVERY 8 WEEKS
     Route: 042
     Dates: start: 20070101
  3. MESALAMINE [Suspect]
     Indication: COLITIS ULCERATIVE
  4. ULCERATIVE COLITIS MEDICATION [Concomitant]
     Indication: COLITIS ULCERATIVE

REACTIONS (1)
  - LUPUS-LIKE SYNDROME [None]
